FAERS Safety Report 10343905 (Version 1)
Quarter: 2014Q3

REPORT INFORMATION
  Report Type: Spontaneous
  Country: US (occurrence: None)
  Receive Date: 20140724
  Receipt Date: 20140724
  Transmission Date: 20150326
  Serious: Yes (Disabling, Other)
  Sender: FDA-Public Use
  Company Number: None

PATIENT
  Age: 74 Year
  Sex: Female
  Weight: 68.04 kg

DRUGS (23)
  1. VIT. B [Concomitant]
  2. SACCHAROMYCES BOULARDII [Concomitant]
     Active Substance: SACCHAROMYCES CEREVISIAE
  3. METOPROLOL ER [Concomitant]
     Active Substance: METOPROLOL SUCCINATE
  4. WARFARIN [Concomitant]
     Active Substance: WARFARIN
  5. FLECAINIDE [Concomitant]
     Active Substance: FLECAINIDE
  6. LISINOPRIL. [Concomitant]
     Active Substance: LISINOPRIL
  7. QUESTRAM [Concomitant]
  8. VIT A [Concomitant]
  9. MSM [Concomitant]
  10. VANCOMYCIN [Concomitant]
     Active Substance: VANCOMYCIN
  11. CLINDAMYCIN [Suspect]
     Active Substance: CLINDAMYCIN\CLINDAMYCIN PHOSPHATE
     Indication: PAROTITIS
     Route: 048
     Dates: start: 20140325, end: 20140331
  12. SIMVASTATIN. [Concomitant]
     Active Substance: SIMVASTATIN
  13. THERA TEARS EYE [Concomitant]
  14. PRESER VISION AREDS 2 [Concomitant]
  15. GLUCOSAMINE WITH CHONDROITIN [Concomitant]
  16. ALENDRONATE [Concomitant]
     Active Substance: ALENDRONATE SODIUM
  17. PREMARIN VAGINAL [Concomitant]
     Active Substance: ESTROGENS, CONJUGATED
  18. LECITHIN [Concomitant]
     Active Substance: LECITHIN
  19. METRONIDAZOL [Concomitant]
     Active Substance: METRONIDAZOLE
  20. THERATEARS [Concomitant]
     Active Substance: CARBOXYMETHYLCELLULOSE SODIUM
  21. VIT. C [Concomitant]
  22. MSM [Concomitant]
     Active Substance: DIMETHYL SULFONE
  23. CALCIUM CITRATE WITH VIT. D [Concomitant]

REACTIONS (4)
  - Economic problem [None]
  - Diarrhoea [None]
  - Clostridium test positive [None]
  - Impaired work ability [None]

NARRATIVE: CASE EVENT DATE: 20140414
